FAERS Safety Report 17116146 (Version 1)
Quarter: 2019Q4

REPORT INFORMATION
  Report Type: Spontaneous
  Country: US (occurrence: US)
  Receive Date: 20191205
  Receipt Date: 20191205
  Transmission Date: 20200122
  Serious: No
  Sender: FDA-Public Use
  Company Number: US-GLAXOSMITHKLINE-US2019GSK213796

PATIENT
  Age: 69 Year
  Sex: Female

DRUGS (1)
  1. FLOVENT DISKUS [Suspect]
     Active Substance: FLUTICASONE PROPIONATE
     Indication: ASTHMA
     Dosage: UNK
     Route: 055
     Dates: start: 2006

REACTIONS (10)
  - Condition aggravated [Not Recovered/Not Resolved]
  - Frequent bowel movements [Unknown]
  - Intervertebral disc protrusion [Not Recovered/Not Resolved]
  - Expired product administered [Unknown]
  - Amnesia [Not Recovered/Not Resolved]
  - Conversion disorder [Unknown]
  - General physical health deterioration [Not Recovered/Not Resolved]
  - Gait inability [Unknown]
  - Ventricular extrasystoles [Not Recovered/Not Resolved]
  - Weight increased [Not Recovered/Not Resolved]

NARRATIVE: CASE EVENT DATE: 20191125
